FAERS Safety Report 10301506 (Version 2)
Quarter: 2014Q3

REPORT INFORMATION
  Report Type: Report from Study
  Country: DE (occurrence: DE)
  Receive Date: 20140714
  Receipt Date: 20140716
  Transmission Date: 20150326
  Serious: No
  Sender: FDA-Public Use
  Company Number: PHHY2014DE085979

PATIENT
  Sex: Female
  Weight: 92 kg

DRUGS (9)
  1. FENISTIL [Concomitant]
     Active Substance: DIMETHINDENE
     Dates: start: 20100616, end: 20100805
  2. PREDNISOLON [Concomitant]
     Active Substance: PREDNISOLONE
     Dates: start: 20100713, end: 20100805
  3. AMN107 [Suspect]
     Active Substance: NILOTINIB
     Dosage: 800 MG, PER DAY
     Route: 048
     Dates: start: 20100720
  4. AMN107 [Suspect]
     Active Substance: NILOTINIB
     Dosage: 800 MG, PER DAY
     Route: 048
     Dates: start: 20100827
  5. PANTOZOL [Concomitant]
     Active Substance: PANTOPRAZOLE SODIUM
     Dosage: 40 MG, UNK
     Dates: start: 20100705
  6. AMN107 [Suspect]
     Active Substance: NILOTINIB
     Indication: CHRONIC MYELOID LEUKAEMIA
     Dosage: 800 MG, PER DAY
     Route: 048
     Dates: start: 20100616
  7. TEMODAL [Concomitant]
     Active Substance: TEMOZOLOMIDE
     Dosage: 100 MG, UNK
     Dates: start: 20100927
  8. FORTECORTIN [Concomitant]
     Active Substance: DEXAMETHASONE
     Dates: start: 20100927
  9. TEMODAL [Concomitant]
     Active Substance: TEMOZOLOMIDE
     Dosage: 200 MG, UNK
     Dates: start: 20100927

REACTIONS (3)
  - Pruritus [Recovered/Resolved]
  - Oedema [Recovered/Resolved]
  - Dermatitis exfoliative [Recovered/Resolved]

NARRATIVE: CASE EVENT DATE: 20100621
